FAERS Safety Report 9438444 (Version 1)
Quarter: 2013Q3

REPORT INFORMATION
  Report Type: Spontaneous
  Country: US (occurrence: None)
  Receive Date: 20130802
  Receipt Date: 20130802
  Transmission Date: 20140515
  Serious: No
  Sender: FDA-Public Use
  Company Number: None

PATIENT
  Age: 64 Year
  Sex: Male
  Weight: 92.99 kg

DRUGS (19)
  1. ANDRODERM [Suspect]
     Indication: BLOOD TESTOSTERONE
     Dosage: 4 MG 24 HR PACH 1 PATCH ON THE SKIN
     Route: 061
     Dates: start: 20130422, end: 20130725
  2. NEXIUM [Concomitant]
  3. LIPITOR [Concomitant]
  4. METFORMIN [Concomitant]
  5. ADVAIR [Concomitant]
  6. NASACORT [Concomitant]
  7. LEVOCETIRIZINE [Concomitant]
  8. MOUTELUKAST [Concomitant]
  9. ESCITALOPRAM [Concomitant]
  10. BABY ASPIRIN [Concomitant]
  11. MULTIVITAMIN [Concomitant]
  12. VIT E [Concomitant]
  13. VIT C [Concomitant]
  14. FISH OIL [Concomitant]
  15. VITAMIN B 12 [Concomitant]
  16. VITAMIN D 3 [Concomitant]
  17. FOLIC ACID [Concomitant]
  18. SELENIUM [Concomitant]
  19. COQ10 [Concomitant]

REACTIONS (2)
  - Rash erythematous [None]
  - Blister [None]
